FAERS Safety Report 9610126 (Version 1)
Quarter: 2013Q4

REPORT INFORMATION
  Report Type: Report from Study
  Country: TW (occurrence: TW)
  Receive Date: 20131009
  Receipt Date: 20131009
  Transmission Date: 20140711
  Serious: No
  Sender: FDA-Public Use
  Company Number: PHHY2013TW075843

PATIENT
  Age: 51 Year
  Sex: Male

DRUGS (58)
  1. DIMETHICONE [Concomitant]
     Dosage: UNK
     Dates: start: 20120410, end: 20120720
  2. DIMETHICONE [Concomitant]
     Dosage: UNK
     Dates: start: 20120821, end: 20121112
  3. DIMETHICONE [Concomitant]
     Dosage: UNK
     Dates: start: 20130118
  4. FEXOFENADINE HCL [Concomitant]
     Indication: NASOPHARYNGITIS
     Dosage: UNK
     Dates: start: 20111122, end: 20111202
  5. FEXOFENADINE HCL [Concomitant]
     Indication: UPPER RESPIRATORY TRACT INFECTION
     Dosage: UNK
     Dates: start: 20120120, end: 20120130
  6. FEXOFENADINE HCL [Concomitant]
     Dosage: UNK
     Dates: start: 20121016, end: 20121025
  7. FEXOFENADINE HCL [Concomitant]
     Dosage: UNK
     Dates: start: 20130319, end: 20130408
  8. FEXOFENADINE HCL [Concomitant]
     Dosage: UNK
     Dates: start: 20130412
  9. FLUNITRAZEPAM [Concomitant]
     Indication: INSOMNIA
     Dosage: UNK
     Dates: start: 20120120, end: 20120213
  10. FLUNITRAZEPAM [Concomitant]
     Dosage: UNK
     Dates: start: 20130118
  11. FUSIDIC ACID [Concomitant]
     Indication: PRURITUS
     Dosage: UNK
     Dates: start: 20110524, end: 20110621
  12. HYDROCORTISONE ACETATE [Concomitant]
     Indication: PRURITUS
     Dosage: UNK
     Dates: start: 20120508, end: 20120821
  13. INDAPAMIDE [Concomitant]
     Indication: HYPERTENSION
     Dosage: UNK
     Dates: start: 20110215, end: 20110524
  14. LACTULOSE [Concomitant]
     Indication: CONSTIPATION
     Dosage: UNK
     Dates: start: 20120410, end: 20120414
  15. LEVOCETIRIZIN [Concomitant]
     Indication: PRURITUS
     Dosage: UNK
     Dates: start: 20110621, end: 20110801
  16. LOPERAMIDE HCL [Concomitant]
     Indication: DIARRHOEA
     Dosage: UNK
     Dates: start: 20121113, end: 20121123
  17. MAGNESIUM OXIDE [Concomitant]
     Indication: CONSTIPATION
     Dosage: UNK
     Dates: start: 20120410, end: 20120723
  18. PRAVASTATIN SODIUM [Concomitant]
     Indication: HYPERCHOLESTEROLAEMIA
     Dosage: UNK
     Dates: start: 20120724, end: 20120918
  19. PRAVASTATIN SODIUM [Concomitant]
     Dosage: UNK
     Dates: start: 20121016, end: 20121203
  20. PRAVASTATIN SODIUM [Concomitant]
     Dosage: UNK
     Dates: start: 20121225
  21. PROCHLORPERAZINE MALEATE [Concomitant]
     Indication: GASTROENTERITIS
     Dosage: UNK
     Dates: start: 20130215, end: 20130218
  22. PROCHLORPERAZINE MESILATE [Concomitant]
     Indication: GASTROENTERITIS
     Dosage: UNK
     Dates: start: 20130215, end: 20130215
  23. SERTACONAZOLE NITRATE [Concomitant]
     Indication: PRURITUS
     Dosage: UNK
     Dates: start: 20121225, end: 20130117
  24. SULFAMETHOXAZOLE [Concomitant]
     Indication: CONJUNCTIVITIS
     Dosage: UNK
     Dates: start: 20120120, end: 20120213
  25. AMN107 [Suspect]
     Dosage: 800 MG, UNK
     Dates: start: 20110425
  26. ACETAMINOPHEN [Concomitant]
     Indication: GASTROENTERITIS
     Dosage: UNK
     Dates: start: 20130215, end: 20130218
  27. ACETAMINOPHEN [Concomitant]
     Indication: UPPER RESPIRATORY TRACT INFECTION
     Dosage: UNK
     Dates: start: 20130319, end: 20130326
  28. ACETAMINOPHEN [Concomitant]
     Dosage: UNK
     Dates: start: 20130412, end: 20130419
  29. AMBROXOL HCL [Concomitant]
     Indication: NASOPHARYNGITIS
     Dosage: UNK
     Dates: start: 20111122, end: 20111202
  30. AMBROXOL HCL [Concomitant]
     Indication: UPPER RESPIRATORY TRACT INFECTION
     Dosage: UNK
     Dates: start: 20120120, end: 20120130
  31. AMBROXOL HCL [Concomitant]
     Dosage: UNK
     Dates: start: 20121016, end: 20121025
  32. AMBROXOL HCL [Concomitant]
     Dosage: UNK
     Dates: start: 20130319, end: 20130408
  33. AMBROXOL HCL [Concomitant]
     Dosage: UNK
     Dates: start: 20130412
  34. AMLODIPINE BESYLATE [Concomitant]
     Indication: HYPERTENSION
     Dosage: UNK
     Dates: start: 20110215, end: 20110524
  35. AMLODIPINE BESYLATE [Concomitant]
     Dosage: UNK
     Dates: start: 20110802, end: 20121224
  36. ANTAZOLINE HYDROCHLORIDE [Concomitant]
     Indication: CONJUNCTIVITIS
     Dosage: UNK
     Dates: start: 20120120, end: 20120409
  37. BETAMETHASONE VALERATE [Concomitant]
     Indication: PRURITUS
     Dosage: UNK
     Dates: start: 20120921, end: 20121015
  38. BETAMETHASONE VALERATE [Concomitant]
     Indication: TINEA PEDIS
     Dosage: UNK
     Dates: start: 20121225, end: 20130117
  39. CLOBETASONE BUTYRATE [Concomitant]
     Indication: PRURITUS
     Dosage: UNK
     Dates: start: 20110503, end: 20110523
  40. CLOBETASONE BUTYRATE [Concomitant]
     Dosage: UNK
     Dates: start: 20110802, end: 20110830
  41. CLOBETASONE BUTYRATE [Concomitant]
     Dosage: UNK
     Dates: start: 20120921, end: 20121112
  42. CLOBETASONE BUTYRATE [Concomitant]
     Dosage: UNK
     Dates: start: 20121225, end: 20130117
  43. CHOLESTYRAMINE RESIN [Concomitant]
     Indication: DIARRHOEA
     Dosage: UNK
     Dates: start: 20110705, end: 20110707
  44. CHOLESTYRAMINE RESIN [Concomitant]
     Dosage: UNK
     Dates: start: 20110802, end: 20110809
  45. CHOLESTYRAMINE RESIN [Concomitant]
     Dosage: UNK
     Dates: start: 20110830, end: 20110927
  46. CIPROFLOXACIN HYDROCHLORIDE MONOHYDRATE [Concomitant]
     Indication: GASTROENTERITIS
     Dosage: UNK
     Dates: start: 20130215, end: 20130218
  47. CIPROFLOXACIN LACTATE [Concomitant]
     Indication: GASTROENTERITIS
     Dosage: UNK
     Dates: start: 20130215, end: 20130215
  48. CLONAZEPAM [Concomitant]
     Indication: INSOMNIA
     Dosage: UNK
     Dates: start: 20110215, end: 20110524
  49. CLONAZEPAM [Concomitant]
     Indication: MUSCLE SPASMS
     Dosage: UNK
     Dates: start: 20110802, end: 20120119
  50. CLONAZEPAM [Concomitant]
     Dosage: UNK
     Dates: start: 20120214, end: 20120820
  51. CLONAZEPAM [Concomitant]
     Dosage: UNK
     Dates: start: 20121016, end: 20121203
  52. DEXTROMETHORPHAN [Concomitant]
     Indication: NASOPHARYNGITIS
     Dosage: UNK
     Dates: start: 20111122, end: 20111202
  53. DEXTROMETHORPHAN [Concomitant]
     Dosage: UNK
     Dates: start: 20120120, end: 20120130
  54. DEXTROMETHORPHAN HBR [Concomitant]
     Indication: UPPER RESPIRATORY TRACT INFECTION
     Dosage: UNK
     Dates: start: 20121016, end: 20121025
  55. DEXTROMETHORPHAN HBR [Concomitant]
     Indication: NASOPHARYNGITIS
     Dosage: UNK
     Dates: start: 20130319, end: 20130408
  56. DEXTROMETHORPHAN HBR [Concomitant]
     Dosage: UNK
     Dates: start: 20130412
  57. DIMETHICONE [Concomitant]
     Indication: FLATULENCE
     Dosage: UNK
     Dates: start: 20110705, end: 20110801
  58. DIMETHICONE [Concomitant]
     Indication: ABDOMINAL DISTENSION
     Dosage: UNK
     Dates: start: 20111122, end: 20120119

REACTIONS (1)
  - Gastrooesophageal reflux disease [Unknown]
